FAERS Safety Report 6370444-X (Version None)
Quarter: 2009Q3

REPORT INFORMATION
  Report Type: 
  Country: None (occurrence: None)
  Receive Date: 20090921
  Receipt Date: 20090921
  Transmission Date: 20100115
  Serious: Yes (Life-Threatening)
  Sender: FDA-Public Use
  Company Number: None

PATIENT
  Sex: Female
  Weight: 78.4723 kg

DRUGS (1)
  1. VASOTEC [Suspect]
     Dosage: 20MG TWICE DAILY   PRIOR TO 2000 TO PRESENT
     Dates: start: 20000101

REACTIONS (3)
  - DYSPNOEA [None]
  - LIP SWELLING [None]
  - PRODUCT SUBSTITUTION ISSUE [None]
